FAERS Safety Report 14101464 (Version 1)
Quarter: 2017Q4

REPORT INFORMATION
  Report Type: Spontaneous
  Country: US (occurrence: US)
  Receive Date: 20171017
  Receipt Date: 20171017
  Transmission Date: 20180321
  Serious: Yes (Disabling)
  Sender: FDA-Public Use
  Company Number: None

PATIENT
  Age: 24 Year
  Sex: Female
  Weight: 52.65 kg

DRUGS (2)
  1. VITAFUSION WOMEN^S MULTIVITAMIN [Concomitant]
  2. KIDS SUNSCREEN SPF 50 [Suspect]
     Active Substance: AVOBENZONE\HOMOSALATE\OCTISALATE\OCTOCRYLENE\OXYBENZONE
     Indication: PROPHYLAXIS AGAINST SOLAR RADIATION
     Route: 061
     Dates: start: 20171003, end: 20171015

REACTIONS (2)
  - Eye swelling [None]
  - Rash [None]

NARRATIVE: CASE EVENT DATE: 20171014
